FAERS Safety Report 10009337 (Version 2)
Quarter: 2014Q1

REPORT INFORMATION
  Report Type: Spontaneous
  Country: US (occurrence: US)
  Receive Date: 20140313
  Receipt Date: 20140313
  Transmission Date: 20141002
  Serious: Yes (Other)
  Sender: FDA-Public Use
  Company Number: US-FRI-1000060299

PATIENT
  Sex: Female
  Weight: 44 kg

DRUGS (11)
  1. LINZESS [Suspect]
     Indication: CONSTIPATION
     Dosage: 290MCG
     Route: 048
     Dates: start: 201401, end: 201401
  2. LINZESS [Suspect]
     Dosage: 290MCG
     Route: 048
     Dates: start: 20140207
  3. MIRALAX [Suspect]
     Dosage: TWICE DAILY
     Dates: end: 20140220
  4. HYDROCHLOROTHIAZIDE [Suspect]
     Dosage: TWICE DAILY
     Dates: end: 20140220
  5. LAXATIVE (NOS) [Concomitant]
     Dosage: EVERY THIRD NIGHT
  6. SENOKOT [Concomitant]
     Dosage: 2 TABLETS TWICE DAILY
  7. OXYCONTIN [Concomitant]
     Indication: TORTICOLLIS
  8. OXYCODONE [Concomitant]
     Indication: TORTICOLLIS
  9. VALIUM [Concomitant]
     Indication: TORTICOLLIS
  10. DULCOLAX [Concomitant]
     Dosage: TABLET
     Route: 048
  11. DULCOLAX [Concomitant]
     Dosage: SUPPOSITORY

REACTIONS (3)
  - Blood pressure decreased [Recovered/Resolved]
  - Drug ineffective [Not Recovered/Not Resolved]
  - Off label use [Not Recovered/Not Resolved]
